FAERS Safety Report 4435214-8 (Version None)
Quarter: 2004Q3

REPORT INFORMATION
  Report Type: 
  Country: None (occurrence: None)
  Receive Date: 20040826
  Receipt Date: 20040818
  Transmission Date: 20050211
  Serious: Yes (Hospitalization)
  Sender: FDA-Public Use
  Company Number: USA-2004-0016396

PATIENT
  Age: 48 Year
  Sex: Female

DRUGS (7)
  1. OXYCONTIN [Suspect]
     Indication: PAIN
     Dosage: 60 MG, DAILY, ORAL
     Route: 048
     Dates: start: 20031110, end: 20040206
  2. SU11248 [Concomitant]
  3. GLICLAZIDE (GLICLAZIDE) [Concomitant]
  4. LOSEC (OMEPRAZOLE) [Concomitant]
  5. ACETAMINOPHEN W/ CODEINE [Concomitant]
  6. COLOXYL WITH SENNA [Concomitant]
  7. LACTULOSE [Concomitant]

REACTIONS (3)
  - ANAEMIA [None]
  - LIVER FUNCTION TEST ABNORMAL [None]
  - PYREXIA [None]
